FAERS Safety Report 10754893 (Version 1)
Quarter: 2015Q1

REPORT INFORMATION
  Report Type: Spontaneous
  Country: US (occurrence: None)
  Receive Date: 20150130
  Receipt Date: 20150130
  Transmission Date: 20150721
  Serious: Yes (Hospitalization)
  Sender: FDA-Public Use
  Company Number: None

PATIENT
  Age: 67 Year
  Sex: Male
  Weight: 90.72 kg

DRUGS (2)
  1. METRONIDAZOLE. [Suspect]
     Active Substance: METRONIDAZOLE
     Indication: DIVERTICULITIS
     Dosage: 1 TABLET TAKEN BY MOUTH
     Route: 048
     Dates: start: 20141222, end: 20150101
  2. METRONIDAZOLE. [Suspect]
     Active Substance: METRONIDAZOLE
     Indication: INFECTION
     Dosage: 1 TABLET TAKEN BY MOUTH
     Route: 048
     Dates: start: 20141222, end: 20150101

REACTIONS (2)
  - Chest discomfort [None]
  - Middle insomnia [None]

NARRATIVE: CASE EVENT DATE: 20141231
